FAERS Safety Report 8478473 (Version 7)
Quarter: 2013Q3

REPORT INFORMATION
  Report Type: Spontaneous
  Country: US (occurrence: US)
  Receive Date: 20120327
  Receipt Date: 20130724
  Transmission Date: 20140515
  Serious: Yes (Hospitalization)
  Sender: FDA-Public Use
  Company Number: US-GLAXOSMITHKLINE-A0971179A

PATIENT
  Age: 59 Year
  Sex: Female

DRUGS (6)
  1. FLOLAN [Suspect]
     Indication: SARCOIDOSIS
     Dosage: 83NGKM CONTINUOUS
     Route: 042
     Dates: start: 20060309
  2. TRACLEER [Concomitant]
     Dosage: 125MG TWICE PER DAY
     Route: 048
  3. LASIX [Concomitant]
     Dosage: 20MGD PER DAY
  4. SPIRONOLACTONE [Concomitant]
     Dosage: 25MGD PER DAY
  5. DIURETICS [Concomitant]
  6. REVATIO [Concomitant]
     Dosage: 20MG THREE TIMES PER DAY

REACTIONS (14)
  - Cardiac failure congestive [Unknown]
  - Hospitalisation [Unknown]
  - Dyspnoea [Unknown]
  - Heart rate increased [Unknown]
  - Chest discomfort [Unknown]
  - Off label use [Unknown]
  - Respiratory rate increased [Unknown]
  - Wheezing [Unknown]
  - Rales [Unknown]
  - Oedema peripheral [Unknown]
  - Oxygen saturation decreased [Unknown]
  - Oxygen supplementation [Unknown]
  - Pulmonary oedema [Unknown]
  - Pulmonary hypertension [Unknown]
